FAERS Safety Report 7945121-1 (Version None)
Quarter: 2011Q4

REPORT INFORMATION
  Report Type: 
  Country: None (occurrence: None)
  Receive Date: 20111129
  Receipt Date: 20111129
  Transmission Date: 20120403
  Serious: Yes (Other)
  Sender: FDA-Public Use
  Company Number: None

PATIENT
  Age: 22 Year
  Sex: Male
  Weight: 81.646 kg

DRUGS (1)
  1. DEXTROAMPHETAMINE SULFATE [Suspect]

REACTIONS (1)
  - MENTAL DISORDER [None]
